FAERS Safety Report 7861693-X (Version None)
Quarter: 2011Q4

REPORT INFORMATION
  Report Type: 
  Country: None (occurrence: None)
  Receive Date: 20111027
  Receipt Date: 20111019
  Transmission Date: 20120403
  Serious: No
  Sender: FDA-Public Use
  Company Number: US-B.I. PHARMACEUTICALS,INC./RIDGEFIELD-2011-BP-18700BP

PATIENT
  Age: 70 Year
  Sex: Female

DRUGS (9)
  1. FUROSEMIDE [Concomitant]
     Dosage: 40 MG
  2. VENTOLIN [Concomitant]
     Indication: CHRONIC OBSTRUCTIVE PULMONARY DISEASE
     Route: 055
  3. ADVAIR DISKUS 100/50 [Concomitant]
     Indication: CHRONIC OBSTRUCTIVE PULMONARY DISEASE
     Route: 055
  4. SIMVASTATIN [Concomitant]
     Dosage: 20 MG
  5. SPIRONOLACTONE [Concomitant]
     Dosage: 25 MG
  6. SPIRIVA [Suspect]
     Indication: CHRONIC OBSTRUCTIVE PULMONARY DISEASE
     Dosage: 18 MCG
     Route: 055
     Dates: start: 20110601
  7. ZOCOR [Concomitant]
     Indication: BLOOD CHOLESTEROL INCREASED
     Route: 048
  8. TRIAMTERENE [Concomitant]
     Indication: HYPERTENSION
     Route: 048
  9. MIRAPEX [Concomitant]
     Indication: RESTLESS LEGS SYNDROME

REACTIONS (3)
  - DYSPNOEA [None]
  - BRONCHITIS [None]
  - JOINT SWELLING [None]
